FAERS Safety Report 15686756 (Version 2)
Quarter: 2019Q1

REPORT INFORMATION
  Report Type: Report from Study
  Country: US (occurrence: US)
  Receive Date: 20181204
  Receipt Date: 20190110
  Transmission Date: 20190417
  Serious: Yes (Hospitalization)
  Sender: FDA-Public Use
  Company Number: US-ACTELION-A-US2017-162859

PATIENT
  Age: 70 Year
  Sex: Male

DRUGS (1)
  1. TRACLEER [Suspect]
     Active Substance: BOSENTAN
     Indication: PULMONARY ARTERIAL HYPERTENSION
     Dosage: 125 MG, BID
     Route: 048
     Dates: start: 20141125

REACTIONS (14)
  - Haematocrit decreased [Unknown]
  - Pyrexia [Unknown]
  - Prostatectomy [Unknown]
  - Red blood cell count decreased [Unknown]
  - Confusional state [Unknown]
  - Haemoglobin decreased [Unknown]
  - Urinary tract infection [Unknown]
  - Micturition urgency [Unknown]
  - Pollakiuria [Unknown]
  - Chills [Unknown]
  - Lymphadenectomy [Unknown]
  - Platelet count decreased [Unknown]
  - Urine output decreased [Unknown]
  - Pneumonia klebsiella [Unknown]

NARRATIVE: CASE EVENT DATE: 20171010
